FAERS Safety Report 5861834-X (Version None)
Quarter: 2008Q3

REPORT INFORMATION
  Report Type: 
  Country: None (occurrence: None)
  Receive Date: 20080827
  Receipt Date: 20080703
  Transmission Date: 20090109
  Serious: No
  Sender: FDA-Public Use
  Company Number: US-ABBOTT-08P-163-0460737-00

PATIENT
  Sex: Male

DRUGS (10)
  1. NIASPAN [Suspect]
     Indication: BLOOD CHOLESTEROL INCREASED
     Route: 048
     Dates: start: 20080601, end: 20080601
  2. NIASPAN [Suspect]
     Route: 048
     Dates: start: 20080601, end: 20080601
  3. NIASPAN [Suspect]
     Route: 048
     Dates: start: 20080601, end: 20080601
  4. NIASPAN [Suspect]
     Route: 048
     Dates: start: 20080601, end: 20080601
  5. NIASPAN [Suspect]
     Route: 048
     Dates: start: 20080701
  6. HYDRALAZINE HYDROCHLORIDE [Concomitant]
     Indication: HYPERTENSION
     Route: 048
     Dates: end: 20080601
  7. HYDRALAZINE HYDROCHLORIDE [Concomitant]
     Route: 048
     Dates: start: 20080627, end: 20080628
  8. HYDRALAZINE HYDROCHLORIDE [Concomitant]
     Route: 048
     Dates: start: 20080628
  9. ACETYLSALICYLIC ACID SRT [Concomitant]
     Indication: PROPHYLAXIS
     Route: 048
     Dates: start: 20080628
  10. INSULIN PUMP [Concomitant]
     Indication: DIABETES MELLITUS

REACTIONS (5)
  - BLOOD GLUCOSE INCREASED [None]
  - FLUSHING [None]
  - HYPOTENSION [None]
  - PRURITUS [None]
  - RASH [None]
